FAERS Safety Report 15246545 (Version 1)
Quarter: 2018Q3

REPORT INFORMATION
  Report Type: Report from Study
  Country: ES (occurrence: ES)
  Receive Date: 20180806
  Receipt Date: 20180806
  Transmission Date: 20181010
  Serious: Yes (Hospitalization, Other)
  Sender: FDA-Public Use
  Company Number: ES-ACTELION-A-NJ2018-177029

PATIENT
  Sex: Female

DRUGS (1)
  1. VENTAVIS [Suspect]
     Active Substance: ILOPROST
     Indication: PULMONARY HYPERTENSION
     Dosage: 1 DF, QID
     Route: 055
     Dates: start: 20150908

REACTIONS (9)
  - Gallbladder disorder [Unknown]
  - Dizziness [Recovering/Resolving]
  - Malaise [Unknown]
  - Product use issue [Unknown]
  - Therapy cessation [Recovered/Resolved]
  - Vomiting [Unknown]
  - Drug dose omission [Unknown]
  - Suffocation feeling [Recovering/Resolving]
  - Nausea [Recovering/Resolving]

NARRATIVE: CASE EVENT DATE: 2018
